FAERS Safety Report 6154697-9 (Version None)
Quarter: 2009Q2

REPORT INFORMATION
  Report Type: 
  Country: None (occurrence: None)
  Receive Date: 20090414
  Receipt Date: 20090408
  Transmission Date: 20091009
  Serious: Yes (Other)
  Sender: FDA-Public Use
  Company Number: A0777571A

PATIENT
  Age: 87 Year
  Sex: Male

DRUGS (10)
  1. AVODART [Suspect]
     Indication: BENIGN PROSTATIC HYPERPLASIA
     Dosage: .5MG PER DAY
     Route: 048
     Dates: start: 20090201
  2. AMLODIPINE BESYLATE AND BENAZEPRIL HCL [Concomitant]
  3. ASPIRIN [Concomitant]
  4. THERA M VITAMINS [Concomitant]
  5. IRON SUPPLEMENT [Concomitant]
  6. PRILOSEC [Concomitant]
  7. PAROXETINE HCL [Concomitant]
  8. LIPITOR [Concomitant]
  9. LEVOTHYROXINE SODIUM [Concomitant]
  10. WARFARIN SODIUM [Concomitant]

REACTIONS (1)
  - ASPARTATE AMINOTRANSFERASE INCREASED [None]
